FAERS Safety Report 8361204-9 (Version None)
Quarter: 2012Q2

REPORT INFORMATION
  Report Type: 
  Country: None (occurrence: None)
  Receive Date: 20120515
  Receipt Date: 20110719
  Transmission Date: 20120825
  Serious: No
  Sender: FDA-Public Use
  Company Number: US-ALEXION-A201101095

PATIENT
  Sex: Female

DRUGS (8)
  1. PREDNISONE TAB [Concomitant]
     Dosage: UNK, QOD
  2. SOLIRIS [Suspect]
     Indication: PAROXYSMAL NOCTURNAL HAEMOGLOBINURIA
     Dosage: 900 MG, Q2W
     Route: 042
  3. FOLIC ACID [Concomitant]
     Dosage: UNK
  4. BONIVA [Concomitant]
     Dosage: 150 MG, QMONTH
  5. EXJADE [Concomitant]
     Dosage: UNK
     Dates: end: 20110609
  6. URSODIOL [Concomitant]
     Indication: NEPHROPATHY
     Dosage: BID
  7. PRILOSEC [Concomitant]
     Dosage: 20 MG, BID
  8. CALCIUM [Concomitant]
     Dosage: UNK

REACTIONS (3)
  - PLATELET COUNT DECREASED [None]
  - WHITE BLOOD CELL COUNT DECREASED [None]
  - DIARRHOEA [None]
